FAERS Safety Report 15442291 (Version 1)
Quarter: 2018Q3

REPORT INFORMATION
  Report Type: Spontaneous
  Country: US (occurrence: US)
  Receive Date: 20180928
  Receipt Date: 20180928
  Transmission Date: 20181010
  Serious: Yes (Other)
  Sender: FDA-Public Use
  Company Number: US-ASTRAZENECA-2018SF23503

PATIENT
  Age: 873 Month
  Sex: Female
  Weight: 43.1 kg

DRUGS (3)
  1. ZETIA [Concomitant]
     Active Substance: EZETIMIBE
  2. ASPIRIN. [Concomitant]
     Active Substance: ASPIRIN
  3. BRILINTA [Suspect]
     Active Substance: TICAGRELOR
     Indication: STENT PLACEMENT
     Route: 048
     Dates: start: 201710

REACTIONS (2)
  - Ureteric obstruction [Unknown]
  - Nephrolithiasis [Not Recovered/Not Resolved]

NARRATIVE: CASE EVENT DATE: 201805
